FAERS Safety Report 9675590 (Version 1)
Quarter: 2013Q4

REPORT INFORMATION
  Report Type: Spontaneous
  Country: US (occurrence: US)
  Receive Date: 20131107
  Receipt Date: 20131107
  Transmission Date: 20140711
  Serious: Yes (Other)
  Sender: FDA-Public Use
  Company Number: US-PFIZER INC-2013314584

PATIENT
  Age: 52 Year
  Sex: Female
  Weight: 52.15 kg

DRUGS (1)
  1. VORICONAZOLE [Suspect]
     Indication: ASPERGILLUS INFECTION
     Dosage: UNK
     Dates: start: 20110601, end: 20110615

REACTIONS (1)
  - Myasthenia gravis crisis [Unknown]
